FAERS Safety Report 12012375 (Version 1)
Quarter: 2016Q1

REPORT INFORMATION
  Report Type: Spontaneous
  Country: US (occurrence: US)
  Receive Date: 20160205
  Receipt Date: 20160205
  Transmission Date: 20160526
  Serious: Yes (Other)
  Sender: FDA-Public Use
  Company Number: US-GLAXOSMITHKLINE-A0845711A

PATIENT
  Age: 83 Year
  Sex: Female

DRUGS (9)
  1. BREO ELLIPTA [Suspect]
     Active Substance: FLUTICASONE FUROATE\VILANTEROL TRIFENATATE
     Indication: ASTHMA EXERCISE INDUCED
     Dosage: 1 PUFF(S), QD
     Route: 055
  2. ADVAIR DISKUS [Suspect]
     Active Substance: FLUTICASONE PROPIONATE\SALMETEROL XINAFOATE
     Dosage: 250/50 UG
  3. ADVAIR DISKUS [Suspect]
     Active Substance: FLUTICASONE PROPIONATE\SALMETEROL XINAFOATE
     Indication: ASTHMA EXERCISE INDUCED
     Dosage: 100/50
     Route: 055
  4. ADVAIR DISKUS [Suspect]
     Active Substance: FLUTICASONE PROPIONATE\SALMETEROL XINAFOATE
     Dosage: 250/50 , 1 PUFF(S), BID
  5. LEVOTHYROXINE. [Concomitant]
     Active Substance: LEVOTHYROXINE
  6. ADVAIR DISKUS [Suspect]
     Active Substance: FLUTICASONE PROPIONATE\SALMETEROL XINAFOATE
     Dosage: 500/50 UG
  7. SINGULAIR [Concomitant]
     Active Substance: MONTELUKAST SODIUM
  8. PYRIDOSTIGMINE [Concomitant]
     Active Substance: PYRIDOSTIGMINE
  9. ADVAIR DISKUS [Suspect]
     Active Substance: FLUTICASONE PROPIONATE\SALMETEROL XINAFOATE
     Indication: ASTHMA
     Dosage: 250/50 , 1 PUFF(S), BID

REACTIONS (14)
  - Cough [Recovered/Resolved]
  - Ill-defined disorder [Unknown]
  - Drug ineffective [Not Recovered/Not Resolved]
  - Wheezing [Unknown]
  - Myasthenia gravis [Not Recovered/Not Resolved]
  - Dyspnoea [Not Recovered/Not Resolved]
  - Pharyngeal disorder [Recovered/Resolved]
  - Dental implantation [Recovered/Resolved]
  - Nerve injury [Recovered/Resolved]
  - Speech disorder [Recovered/Resolved]
  - Dysgeusia [Unknown]
  - Dysphonia [Recovered/Resolved]
  - Intentional product use issue [Unknown]
  - Adverse drug reaction [Unknown]

NARRATIVE: CASE EVENT DATE: 201308
